FAERS Safety Report 10963490 (Version 2)
Quarter: 2015Q2

REPORT INFORMATION
  Report Type: Spontaneous
  Country: FR (occurrence: None)
  Receive Date: 20150326
  Receipt Date: 20150406
  Transmission Date: 20150821
  Serious: Yes (Death, Other)
  Sender: FDA-Public Use
  Company Number: 2793053

PATIENT
  Age: 59 Year
  Sex: Male

DRUGS (13)
  1. CORTANCYL [Concomitant]
     Active Substance: PREDNISONE
  2. ERBITUX [Suspect]
     Active Substance: CETUXIMAB
     Indication: SQUAMOUS CELL CARCINOMA
     Dosage: 1 SINGLE DOSE
     Dates: start: 20150220, end: 20150220
  3. FLUOROURACIL. [Suspect]
     Active Substance: FLUOROURACIL
     Indication: SQUAMOUS CELL CARCINOMA
     Dates: start: 20150221, end: 20150223
  4. DISCOTRINE [Concomitant]
     Active Substance: NITROGLYCERIN
  5. LEVEMIR [Concomitant]
     Active Substance: INSULIN DETEMIR
  6. LASILIX SPECIAL [Concomitant]
     Active Substance: FUROSEMIDE
  7. PLAVIX [Concomitant]
     Active Substance: CLOPIDOGREL BISULFATE
  8. XALATAN [Concomitant]
     Active Substance: LATANOPROST
  9. RIVOTRIL [Concomitant]
     Active Substance: CLONAZEPAM
  10. NOVORAPID [Concomitant]
     Active Substance: INSULIN ASPART
  11. TRAMADOL [Concomitant]
     Active Substance: TRAMADOL
  12. CARBOPLATIN. [Suspect]
     Active Substance: CARBOPLATIN
     Indication: SQUAMOUS CELL CARCINOMA
     Dosage: 1 SINGLE DOSE
     Dates: start: 20150220, end: 20150220
  13. CARTEOL [Concomitant]
     Active Substance: CARTEOLOL

REACTIONS (12)
  - Cardiogenic shock [None]
  - Gamma-glutamyltransferase increased [None]
  - Blood alkaline phosphatase increased [None]
  - Electrocardiogram T wave abnormal [None]
  - Dyspnoea [None]
  - Cardiac failure [None]
  - Renal failure [None]
  - Nausea [None]
  - Troponin increased [None]
  - Aspartate aminotransferase increased [None]
  - Alanine aminotransferase increased [None]
  - Electrocardiogram QRS complex shortened [None]

NARRATIVE: CASE EVENT DATE: 20150225
